FAERS Safety Report 14394480 (Version 1)
Quarter: 2018Q1

REPORT INFORMATION
  Report Type: Spontaneous
  Country: GB (occurrence: GB)
  Receive Date: 20180116
  Receipt Date: 20180116
  Transmission Date: 20180509
  Serious: Yes (Hospitalization)
  Sender: FDA-Public Use
  Company Number: GB-TEVA-2018-GB-844607

PATIENT
  Age: 84 Year
  Sex: Female

DRUGS (8)
  1. LANSOPRAZOLE. [Concomitant]
     Active Substance: LANSOPRAZOLE
  2. PARACETAMOL [Concomitant]
     Active Substance: ACETAMINOPHEN
     Route: 065
  3. CASSIA [Concomitant]
  4. PERINDOPRIL [Concomitant]
     Active Substance: PERINDOPRIL
  5. MACROGOL 3350 [Concomitant]
     Active Substance: POLYETHYLENE GLYCOL 3350
  6. AMLODIPINE [Suspect]
     Active Substance: AMLODIPINE BESYLATE
     Route: 048
  7. NEFOPAM [Concomitant]
     Active Substance: NEFOPAM
  8. FLUCLOXACILLIN [Concomitant]
     Active Substance: FLUCLOXACILLIN
     Route: 048

REACTIONS (5)
  - Pyrexia [Unknown]
  - Cellulitis [Unknown]
  - Chills [Unknown]
  - Oedema peripheral [Recovered/Resolved]
  - Dysuria [Unknown]
